FAERS Safety Report 17404663 (Version 1)
Quarter: 2020Q1

REPORT INFORMATION
  Report Type: Spontaneous
  Country: DE (occurrence: DE)
  Receive Date: 20200211
  Receipt Date: 20200211
  Transmission Date: 20200409
  Serious: Yes (Hospitalization, Other)
  Sender: FDA-Public Use
  Company Number: DE-AMGEN-DEUSP2020021883

PATIENT
  Age: 24 Year
  Sex: Male

DRUGS (1)
  1. PEGFILGRASTIM [Suspect]
     Active Substance: PEGFILGRASTIM
     Indication: LEUKOPENIA
     Dosage: UNK
     Route: 065

REACTIONS (5)
  - Hyperleukocytosis [Unknown]
  - Splenic rupture [Unknown]
  - Shock haemorrhagic [Unknown]
  - Vomiting [Unknown]
  - Nausea [Unknown]
